FAERS Safety Report 7569478 (Version 3)
Quarter: 2014Q1

REPORT INFORMATION
  Report Type: Spontaneous
  Country: US (occurrence: US)
  Receive Date: 20100901
  Receipt Date: 20140205
  Transmission Date: 20141002
  Serious: Yes (Hospitalization)
  Sender: FDA-Public Use
  Company Number: US-SANOFI-AVENTIS-2010SA051775

PATIENT
  Age: 40 Year
  Sex: Female

DRUGS (2)
  1. LANTUS [Suspect]
     Indication: TYPE 2 DIABETES MELLITUS
     Dosage: DOSE:62 UNIT(S)
     Route: 058
  2. AMARYL [Suspect]
     Indication: TYPE 2 DIABETES MELLITUS
     Route: 048

REACTIONS (10)
  - Atrial fibrillation [Not Recovered/Not Resolved]
  - Cerebrovascular accident [Unknown]
  - Influenza [Unknown]
  - Pyrexia [Unknown]
  - Hypoaesthesia [Unknown]
  - Fluid retention [Unknown]
  - Cardiac disorder [Unknown]
  - Ovarian disorder [Unknown]
  - Liver disorder [Unknown]
  - Exposure during breast feeding [Unknown]
